FAERS Safety Report 7236929-9 (Version None)
Quarter: 2011Q1

REPORT INFORMATION
  Report Type: 
  Country: None (occurrence: None)
  Receive Date: 20110121
  Receipt Date: 20110113
  Transmission Date: 20110831
  Serious: Yes (Other)
  Sender: FDA-Public Use
  Company Number: JP-AMGEN-JPNSP2010012490

PATIENT

DRUGS (4)
  1. RHEUMATREX [Concomitant]
     Dosage: UNK
  2. ANTIHYPERTENSIVES [Concomitant]
  3. CORTICOSTEROID NOS [Concomitant]
  4. ENBREL [Suspect]
     Indication: RHEUMATOID ARTHRITIS
     Dosage: 50 MG, WEEKLY
     Route: 058
     Dates: start: 20100801, end: 20101211

REACTIONS (4)
  - SUBARACHNOID HAEMORRHAGE [None]
  - HEADACHE [None]
  - HYPERTENSION [None]
  - MYALGIA [None]
